FAERS Safety Report 7371308-5 (Version None)
Quarter: 2011Q1

REPORT INFORMATION
  Report Type: 
  Country: None (occurrence: None)
  Receive Date: 20110321
  Receipt Date: 20110321
  Transmission Date: 20110831
  Serious: Yes (Other)
  Sender: FDA-Public Use
  Company Number: None

PATIENT
  Age: 61 Year
  Sex: Male
  Weight: 104.3273 kg

DRUGS (6)
  1. MOBIC [Concomitant]
  2. BENADRYL [Suspect]
     Indication: SLEEP DISORDER
     Dosage: ONE TABLE NIGHTLY BUCCAL ONCE DAILY FOR TWO NIGHTS
     Route: 002
     Dates: start: 20110217, end: 20110318
  3. BENADRYL [Suspect]
     Indication: SLEEP DISORDER
     Dosage: ONE TABLE NIGHTLY BUCCAL ONCE DAILY FOR TWO NIGHTS
     Route: 002
     Dates: start: 20110316, end: 20110317
  4. ACIFLEX [Concomitant]
  5. LIPITOR [Concomitant]
  6. ASPIRIN [Concomitant]

REACTIONS (4)
  - THROAT TIGHTNESS [None]
  - CHOKING [None]
  - DYSPNOEA [None]
  - MIDDLE INSOMNIA [None]
